FAERS Safety Report 11498281 (Version 1)
Quarter: 2015Q3

REPORT INFORMATION
  Report Type: Spontaneous
  Country: US (occurrence: US)
  Receive Date: 20150911
  Receipt Date: 20150911
  Transmission Date: 20151125
  Serious: Yes (Other)
  Sender: FDA-Public Use
  Company Number: US-SUNOVION-2015SUN000157

PATIENT
  Sex: Male

DRUGS (1)
  1. APTIOM [Suspect]
     Active Substance: ESLICARBAZEPINE ACETATE
     Indication: SEIZURE
     Dosage: 200 MG, UNK
     Route: 048
     Dates: start: 201508

REACTIONS (2)
  - Ankle fracture [Unknown]
  - Seizure [Unknown]
